FAERS Safety Report 14946999 (Version 5)
Quarter: 2019Q3

REPORT INFORMATION
  Report Type: Spontaneous
  Country: FI (occurrence: FI)
  Receive Date: 20180529
  Receipt Date: 20190701
  Transmission Date: 20191004
  Serious: Yes (Other)
  Sender: FDA-Public Use
  Company Number: FI-JNJFOC-20180532945

PATIENT
  Age: 63 Year
  Sex: Male

DRUGS (3)
  1. XARELTO [Suspect]
     Active Substance: RIVAROXABAN
     Indication: ATRIAL FIBRILLATION
     Route: 048
     Dates: start: 201708
  2. BISPROLOL COMP [Suspect]
     Active Substance: BISOPROLOL FUMARATE\HYDROCHLOROTHIAZIDE
     Indication: PRODUCT USED FOR UNKNOWN INDICATION
  3. METOPROLOL. [Suspect]
     Active Substance: METOPROLOL
     Indication: PRODUCT USED FOR UNKNOWN INDICATION

REACTIONS (13)
  - Increased tendency to bruise [Unknown]
  - Muscle spasms [Unknown]
  - Arthralgia [Unknown]
  - Cataract [Unknown]
  - Tinnitus [Recovering/Resolving]
  - Epistaxis [Unknown]
  - Hypoacusis [Unknown]
  - Musculoskeletal discomfort [Unknown]
  - Initial insomnia [Unknown]
  - Dizziness [Unknown]
  - Pain in extremity [Unknown]
  - Musculoskeletal pain [Unknown]
  - Post procedural haemorrhage [Recovered/Resolved]

NARRATIVE: CASE EVENT DATE: 201801
